FAERS Safety Report 5741316-6 (Version None)
Quarter: 2008Q2

REPORT INFORMATION
  Report Type: 
  Country: None (occurrence: None)
  Receive Date: 20080515
  Receipt Date: 20080506
  Transmission Date: 20081010
  Serious: Yes (Other)
  Sender: FDA-Public Use
  Company Number: 2008005353

PATIENT

DRUGS (1)
  1. ADVANCED RELIEF VISINE [Suspect]
     Indication: OCULAR HYPERAEMIA
     Dosage: UNSPECIFIED, OPHTHALMIC
     Route: 047

REACTIONS (2)
  - INSTILLATION SITE IRRITATION [None]
  - PHARMACEUTICAL PRODUCT COMPLAINT [None]
